FAERS Safety Report 7967183-8 (Version None)
Quarter: 2011Q4

REPORT INFORMATION
  Report Type: 
  Country: None (occurrence: None)
  Receive Date: 20111206
  Receipt Date: 20111122
  Transmission Date: 20120403
  Serious: Yes (Hospitalization)
  Sender: FDA-Public Use
  Company Number: TPA2011A07875

PATIENT
  Age: 58 Year
  Sex: Male

DRUGS (6)
  1. LANSOPRAZOLE [Concomitant]
  2. FEBURIC (FEBUXOSTAT) [Suspect]
     Indication: HYPERURICAEMIA
     Dosage: 10 MG (10 MG, 1 IN 1 D) PER ORAL
     Route: 048
     Dates: start: 20111013, end: 20111110
  3. ACETAMINOPHEN [Suspect]
     Indication: PYREXIA
     Dosage: (400 MG) ORAL
     Route: 048
     Dates: start: 20111109, end: 20111109
  4. LENADEX (DEXAMETHASONE) [Concomitant]
  5. VELCADE [Suspect]
     Indication: MULTIPLE MYELOMA
     Dosage: 2) MILLIGRAM/ SQ. METER (1.3) INTRAVENOUS
     Route: 042
     Dates: start: 20111026, end: 20111105
  6. PURSENNID (SENNOSIDE A+B CALCIUM) [Concomitant]

REACTIONS (1)
  - ERYTHEMA MULTIFORME [None]
